FAERS Safety Report 17929085 (Version 1)
Quarter: 2020Q2

REPORT INFORMATION
  Report Type: Spontaneous
  Country: CA (occurrence: CA)
  Receive Date: 20200623
  Receipt Date: 20200623
  Transmission Date: 20200714
  Serious: Yes (Other)
  Sender: FDA-Public Use
  Company Number: CA-TEVA-2020-CA-1791130

PATIENT
  Age: 82 Year
  Sex: Female

DRUGS (19)
  1. CITRUS BIOFLAVONOIDS. [Concomitant]
     Active Substance: CITRUS BIOFLAVONOIDS
  2. SEROQUEL [Concomitant]
     Active Substance: QUETIAPINE FUMARATE
  3. LACTULOSE. [Concomitant]
     Active Substance: LACTULOSE
  4. VITAMIN D [Concomitant]
     Active Substance: VITAMIN D NOS
  5. TRAJENTA [Concomitant]
     Active Substance: LINAGLIPTIN
  6. CLINDAMYCIN. [Suspect]
     Active Substance: CLINDAMYCIN
     Indication: STAPHYLOCOCCAL INFECTION
     Dosage: 1350 MILLIGRAM DAILY;
     Route: 048
  7. CLINDAMYCIN. [Suspect]
     Active Substance: CLINDAMYCIN
     Indication: PSEUDOMONAS INFECTION
  8. SULFAMETHOXAZOLE AND TRIMETHOPRIM [Suspect]
     Active Substance: SULFAMETHOXAZOLE\TRIMETHOPRIM
     Indication: PSEUDOMONAS INFECTION
  9. BISOPROLOL [Concomitant]
     Active Substance: BISOPROLOL
  10. SULFAMETHOXAZOLE AND TRIMETHOPRIM [Suspect]
     Active Substance: SULFAMETHOXAZOLE\TRIMETHOPRIM
     Indication: STAPHYLOCOCCAL INFECTION
     Dosage: 1 DOSAGE FORMS DAILY;
     Route: 048
  11. CLINDAMYCIN. [Concomitant]
     Active Substance: CLINDAMYCIN
     Dosage: 1350 MILLIGRAM DAILY;
     Route: 048
  12. LORAZEPAM. [Concomitant]
     Active Substance: LORAZEPAM
  13. SYNTHROID [Concomitant]
     Active Substance: LEVOTHYROXINE SODIUM
  14. ELIQUIS [Concomitant]
     Active Substance: APIXABAN
  15. HYDROMORPHONE [Concomitant]
     Active Substance: HYDROMORPHONE
  16. MELATONIN [Concomitant]
     Active Substance: MELATONIN
  17. DONEPEZIL. [Concomitant]
     Active Substance: DONEPEZIL
  18. TAMIFLU [Concomitant]
     Active Substance: OSELTAMIVIR PHOSPHATE
  19. TYLENOL [Concomitant]
     Active Substance: ACETAMINOPHEN

REACTIONS (3)
  - Purpura [Unknown]
  - Rash [Unknown]
  - Vasculitis [Unknown]
